FAERS Safety Report 5788581-7 (Version None)
Quarter: 2008Q2

REPORT INFORMATION
  Report Type: 
  Country: None (occurrence: None)
  Receive Date: 20080626
  Receipt Date: 20080215
  Transmission Date: 20081010
  Serious: No
  Sender: FDA-Public Use
  Company Number: US-BAYER-200814697NA

PATIENT
  Age: 34 Year
  Sex: Female
  Weight: 82 kg

DRUGS (5)
  1. MIRENA [Suspect]
     Indication: CONTRACEPTION
     Route: 015
     Dates: start: 20030101, end: 20080205
  2. HYDROCHLOROTHIAZIDE [Concomitant]
     Indication: HYPERTENSION
  3. CRESTOR [Concomitant]
     Indication: BLOOD CHOLESTEROL INCREASED
  4. CLARITIN [Concomitant]
     Indication: SEASONAL ALLERGY
  5. LOESTRIN 1.5/30 [Concomitant]

REACTIONS (4)
  - GENITAL HAEMORRHAGE [None]
  - MOOD SWINGS [None]
  - VAGINAL HAEMORRHAGE [None]
  - WEIGHT INCREASED [None]
